FAERS Safety Report 7222684-5 (Version None)
Quarter: 2011Q1

REPORT INFORMATION
  Report Type: 
  Country: None (occurrence: None)
  Receive Date: 20110106
  Receipt Date: 20110106
  Transmission Date: 20110831
  Serious: Yes (Other)
  Sender: FDA-Public Use
  Company Number: None

PATIENT
  Age: 50 Year
  Sex: Female
  Weight: 79.5 kg

DRUGS (2)
  1. BIAXIN [Suspect]
     Indication: BRONCHITIS
     Dosage: 500 MG 1 EVERY 12 HRS ORAL
     Route: 048
     Dates: start: 20101201, end: 20101207
  2. BIAXIN [Suspect]
     Indication: SINUSITIS
     Dosage: 500 MG 1 EVERY 12 HRS ORAL
     Route: 048
     Dates: start: 20101201, end: 20101207

REACTIONS (4)
  - HEPATITIS [None]
  - BACK PAIN [None]
  - EMOTIONAL DISORDER [None]
  - DISORIENTATION [None]
